FAERS Safety Report 8383435 (Version 2)
Quarter: 2014Q1

REPORT INFORMATION
  Report Type: Spontaneous
  Country: US (occurrence: US)
  Receive Date: 20120201
  Receipt Date: 20140303
  Transmission Date: 20141002
  Serious: Yes (Hospitalization)
  Sender: FDA-Public Use
  Company Number: US-GLAXOSMITHKLINE-B0718304A

PATIENT
  Age: 67 Year
  Sex: Female
  Weight: 92.3 kg

DRUGS (1)
  1. AVANDIA [Suspect]
     Indication: DIABETES MELLITUS
     Dosage: 4MG PER DAY
     Route: 048
     Dates: start: 200603, end: 20060702

REACTIONS (4)
  - Cerebrovascular accident [Not Recovered/Not Resolved]
  - Bladder disorder [Unknown]
  - Renal disorder [Unknown]
  - Hemiplegia [Unknown]
